FAERS Safety Report 10111976 (Version 2)
Quarter: 2014Q2

REPORT INFORMATION
  Report Type: Spontaneous
  Country: US (occurrence: US)
  Receive Date: 20140425
  Receipt Date: 20140603
  Transmission Date: 20141212
  Serious: No
  Sender: FDA-Public Use
  Company Number: US-B.I. PHARMACEUTICALS,INC./RIDGEFIELD-2014-BI-17548BP

PATIENT
  Age: 79 Year
  Sex: Male
  Weight: 105.69 kg

DRUGS (21)
  1. PRADAXA [Suspect]
     Indication: ATRIAL FIBRILLATION
     Dosage: 300 MG
     Route: 048
     Dates: start: 201306, end: 201308
  2. ASPIRIN LOW [Concomitant]
     Dosage: 81 MG
     Route: 048
  3. ELIQUIS [Concomitant]
     Dosage: 5 MG
     Route: 065
  4. METFORMIN HCL [Concomitant]
     Dosage: 2000 MG
     Route: 048
  5. GLIPIZIDE [Concomitant]
     Dosage: 20 MG
     Route: 048
  6. PRILOSEC [Concomitant]
     Route: 048
  7. FISH OIL [Concomitant]
     Dosage: 2000 MG
     Route: 048
  8. CARVEDILOL [Concomitant]
     Route: 048
  9. MAGNESIUM [Concomitant]
     Route: 048
  10. LOSARTAN [Concomitant]
     Route: 048
  11. LASIX [Concomitant]
     Dosage: 20 MG
     Route: 048
  12. LANTUS [Concomitant]
     Dosage: DOSE PER APPLICATION AND DAILY DOSE: 55 UNITS
     Route: 058
  13. PRAVASTATIN [Concomitant]
     Route: 048
  14. PRILOSEC [Concomitant]
     Dosage: 40 MG
     Route: 048
  15. TRAVATAN [Concomitant]
     Dosage: DOSE PER APPLICATION AND DAILY DOSE: 1 DROP
     Route: 065
  16. MAGNESIUM OXIDE [Concomitant]
     Dosage: 800 MG
     Route: 048
  17. NITROGLYCERIN [Concomitant]
     Indication: CHEST PAIN
     Dosage: FORMULATION: SUBLINGUAL
     Route: 065
  18. LOTRIMIN ULTRA [Concomitant]
     Route: 065
  19. COREG [Concomitant]
     Dosage: 50 MG
     Route: 065
  20. COZAAR [Concomitant]
     Dosage: 50 MG
     Route: 048
  21. PRAVACHOL [Concomitant]
     Dosage: 20 MG
     Route: 065

REACTIONS (3)
  - Abdominal distension [Recovered/Resolved]
  - Abdominal pain upper [Recovered/Resolved]
  - Gastritis [Recovered/Resolved]
